FAERS Safety Report 5826501-7 (Version None)
Quarter: 2008Q3

REPORT INFORMATION
  Report Type: 
  Country: None (occurrence: None)
  Receive Date: 20080724
  Receipt Date: 20080717
  Transmission Date: 20090109
  Serious: Yes (Other)
  Sender: FDA-Public Use
  Company Number: SPI200800289

PATIENT
  Age: 48 Year
  Sex: Female

DRUGS (2)
  1. AMITIZA [Suspect]
     Indication: CONSTIPATION
     Dosage: 24 MCG, ORAL
     Route: 048
     Dates: start: 20080603, end: 20080603
  2. PROTONIX /01263201/ (PANTOPRAZOLE) [Concomitant]

REACTIONS (2)
  - COLITIS ISCHAEMIC [None]
  - DIARRHOEA HAEMORRHAGIC [None]
